FAERS Safety Report 25884267 (Version 1)
Quarter: 2025Q4

REPORT INFORMATION
  Report Type: Spontaneous
  Country: CN (occurrence: CN)
  Receive Date: 20251006
  Receipt Date: 20251006
  Transmission Date: 20260118
  Serious: Yes (Other)
  Sender: ACCORD
  Company Number: CN-Accord-506568

PATIENT
  Age: 72 Year
  Sex: Male

DRUGS (4)
  1. ETOPOSIDE [Suspect]
     Active Substance: ETOPOSIDE
     Indication: Small cell lung cancer
     Dosage: FOUR CYCLES
     Dates: start: 202006, end: 202008
  2. CARBOPLATIN [Suspect]
     Active Substance: CARBOPLATIN
     Indication: Small cell lung cancer
     Dosage: FOUR CYCLES
     Dates: start: 202006, end: 202008
  3. CARBOPLATIN [Suspect]
     Active Substance: CARBOPLATIN
     Indication: Hepatocellular carcinoma
     Dosage: FOUR CYCLES
     Dates: start: 202006, end: 202008
  4. ETOPOSIDE [Suspect]
     Active Substance: ETOPOSIDE
     Indication: Hepatocellular carcinoma
     Dosage: FOUR CYCLES
     Dates: start: 202006, end: 202008

REACTIONS (2)
  - Therapy partial responder [Unknown]
  - Cardiac failure [Unknown]

NARRATIVE: CASE EVENT DATE: 20200101
